FAERS Safety Report 5221203-2 (Version None)
Quarter: 2007Q1

REPORT INFORMATION
  Report Type: 
  Country: None (occurrence: None)
  Receive Date: 20070126
  Receipt Date: 20070118
  Transmission Date: 20070707
  Serious: Yes (Other)
  Sender: FDA-Public Use
  Company Number: FR-BOEHRINGER INGELHEIM PHARMACEUTICALS, INC.-2007-FF-00071PF

PATIENT
  Sex: Male

DRUGS (9)
  1. SPIRIVA [Suspect]
     Route: 055
     Dates: start: 20061108
  2. CORTANCYL [Concomitant]
  3. TANAKAN [Concomitant]
  4. DAFALGAN [Concomitant]
  5. DIFFU K [Concomitant]
  6. TRIATEC [Concomitant]
  7. ALDACTONE [Concomitant]
  8. PREVISCAN [Concomitant]
  9. CORDARONE [Concomitant]

REACTIONS (2)
  - PROSTATE CANCER [None]
  - URINARY RETENTION [None]
